FAERS Safety Report 4407671-4 (Version None)
Quarter: 2004Q3

REPORT INFORMATION
  Report Type: 
  Country: None (occurrence: None)
  Receive Date: 20040721
  Receipt Date: 20040713
  Transmission Date: 20050211
  Serious: Yes (Disabling)
  Sender: FDA-Public Use
  Company Number: 2004-07-0470

PATIENT
  Age: 76 Year
  Sex: Female

DRUGS (5)
  1. NASONEX [Suspect]
     Indication: RHINITIS
     Dosage: 2 SPRAYS/QD NASAL SPRAY
     Dates: start: 20031229, end: 20040101
  2. SELECTOL [Concomitant]
  3. ISMOX [Concomitant]
  4. MAREVAN [Concomitant]
  5. NITROMEX [Concomitant]

REACTIONS (2)
  - RETINAL TEAR [None]
  - VISUAL ACUITY REDUCED [None]
